FAERS Safety Report 14573644 (Version 1)
Quarter: 2018Q1

REPORT INFORMATION
  Report Type: Spontaneous
  Country: IT (occurrence: IT)
  Receive Date: 20180226
  Receipt Date: 20180226
  Transmission Date: 20180509
  Serious: Yes (Other)
  Sender: FDA-Public Use
  Company Number: IT-MYLANLABS-2018M1012252

PATIENT
  Age: 56 Year
  Sex: Male

DRUGS (1)
  1. DOXAZOSIN [Suspect]
     Active Substance: DOXAZOSIN\DOXAZOSIN MESYLATE
     Indication: HYPERTENSION
     Dosage: 6 MG, TOTAL
     Route: 048
     Dates: start: 20161006, end: 20161006

REACTIONS (6)
  - Hypotension [Unknown]
  - Vomiting [Unknown]
  - Loss of consciousness [Unknown]
  - Syncope [Unknown]
  - Drug abuse [Unknown]
  - Hyperhidrosis [Unknown]

NARRATIVE: CASE EVENT DATE: 20161006
